FAERS Safety Report 11641326 (Version 2)
Quarter: 2015Q4

REPORT INFORMATION
  Report Type: Report from Study
  Country: US (occurrence: US)
  Receive Date: 20151019
  Receipt Date: 20151113
  Transmission Date: 20160304
  Serious: Yes (Other)
  Sender: FDA-Public Use
  Company Number: US-BAYER-2015-421264

PATIENT
  Age: 66 Year
  Sex: Male

DRUGS (2)
  1. STIVARGA [Suspect]
     Active Substance: REGORAFENIB
     Indication: COLON CANCER
     Dosage: 120 MG, QD
     Route: 048
     Dates: start: 20150827, end: 20150909
  2. STIVARGA [Suspect]
     Active Substance: REGORAFENIB
     Indication: COLON CANCER
     Dosage: 80 MG, QD
     Route: 048
     Dates: start: 20150923

REACTIONS (28)
  - Skin fissures [None]
  - Disturbance in attention [None]
  - Hyperhidrosis [None]
  - Pre-existing condition improved [Recovered/Resolved]
  - Nausea [Recovered/Resolved]
  - Arthralgia [Recovering/Resolving]
  - Hyperkeratosis [None]
  - Body temperature increased [None]
  - Pain of skin [None]
  - Rash generalised [Not Recovered/Not Resolved]
  - Neuropathy peripheral [Not Recovered/Not Resolved]
  - Pre-existing condition improved [None]
  - Pain in extremity [Not Recovered/Not Resolved]
  - Headache [Not Recovered/Not Resolved]
  - Arthralgia [Not Recovered/Not Resolved]
  - Abdominal tenderness [Not Recovered/Not Resolved]
  - Hair growth abnormal [None]
  - Back pain [Not Recovered/Not Resolved]
  - Fatigue [None]
  - Stomatitis [None]
  - Muscular weakness [Recovering/Resolving]
  - Tongue ulceration [Recovering/Resolving]
  - Abnormal dreams [Recovered/Resolved]
  - Balance disorder [None]
  - Diabetes mellitus [Not Recovered/Not Resolved]
  - Memory impairment [None]
  - Pain [None]
  - Frequent bowel movements [None]

NARRATIVE: CASE EVENT DATE: 2015
